FAERS Safety Report 11204903 (Version 1)
Quarter: 2015Q2

REPORT INFORMATION
  Report Type: Spontaneous
  Country: NL (occurrence: NL)
  Receive Date: 20150622
  Receipt Date: 20150622
  Transmission Date: 20150821
  Serious: Yes (Death)
  Sender: FDA-Public Use
  Company Number: NL-ASTRAZENECA-2015SE60646

PATIENT
  Age: 18688 Day
  Sex: Female

DRUGS (1)
  1. FASLODEX [Suspect]
     Active Substance: FULVESTRANT
     Indication: BREAST CANCER METASTATIC
     Dosage: 50 MG/ML WWSP 5ML 2X
     Route: 030
     Dates: start: 20150410

REACTIONS (1)
  - Death [Fatal]

NARRATIVE: CASE EVENT DATE: 20150606
